FAERS Safety Report 6355180-8 (Version None)
Quarter: 2009Q3

REPORT INFORMATION
  Report Type: 
  Country: None (occurrence: None)
  Receive Date: 20090914
  Receipt Date: 20090903
  Transmission Date: 20100115
  Serious: Yes (Life-Threatening)
  Sender: FDA-Public Use
  Company Number: AT-NAPPMUNDI-DEU-2009-0005493

PATIENT
  Age: 30 Year
  Sex: Male
  Weight: 72 kg

DRUGS (1)
  1. SUBSTITOL RETARD 120 MG-KAPSELN [Suspect]
     Indication: DRUG ABUSE
     Dosage: 60 MG, UNK
     Route: 042

REACTIONS (2)
  - DRUG ABUSE [None]
  - HYPOAESTHESIA FACIAL [None]
